FAERS Safety Report 10351425 (Version 2)
Quarter: 2014Q3

REPORT INFORMATION
  Report Type: Spontaneous
  Country: US (occurrence: US)
  Receive Date: 20140730
  Receipt Date: 20140827
  Transmission Date: 20150326
  Serious: Yes (Hospitalization)
  Sender: FDA-Public Use
  Company Number: US-GLAXOSMITHKLINE-A1083241A

PATIENT
  Age: 64 Year
  Sex: Female

DRUGS (1)
  1. BENLYSTA [Suspect]
     Active Substance: BELIMUMAB
     Indication: SYSTEMIC LUPUS ERYTHEMATOSUS
     Route: 042
     Dates: end: 201406

REACTIONS (4)
  - Staphylococcal infection [Unknown]
  - Wound [Not Recovered/Not Resolved]
  - Malaise [Unknown]
  - Furuncle [Unknown]

NARRATIVE: CASE EVENT DATE: 201406
